FAERS Safety Report 14735660 (Version 3)
Quarter: 2018Q2

REPORT INFORMATION
  Report Type: Spontaneous
  Country: US (occurrence: US)
  Receive Date: 20180409
  Receipt Date: 20180622
  Transmission Date: 20180711
  Serious: Yes (Hospitalization, Other)
  Sender: FDA-Public Use
  Company Number: US-PFIZER INC-2018142117

PATIENT
  Age: 46 Year
  Sex: Female

DRUGS (2)
  1. ACYCLOVIR. [Concomitant]
     Active Substance: ACYCLOVIR
     Dosage: UNK
  2. XELJANZ XR [Suspect]
     Active Substance: TOFACITINIB CITRATE
     Indication: RHEUMATOID ARTHRITIS
     Dosage: 11 MG 1 TABLET EVERY DAY

REACTIONS (6)
  - Pneumonia [Unknown]
  - Plantar fasciitis [Unknown]
  - Dry mouth [Unknown]
  - Drug ineffective [Unknown]
  - Menstrual disorder [Unknown]
  - Ulnar nerve injury [Unknown]
